FAERS Safety Report 8030518-4 (Version None)
Quarter: 2012Q1

REPORT INFORMATION
  Report Type: 
  Country: None (occurrence: None)
  Receive Date: 20120109
  Receipt Date: 20120105
  Transmission Date: 20120608
  Serious: Yes (Hospitalization)
  Sender: FDA-Public Use
  Company Number: US-ROCHE-1015533

PATIENT
  Sex: Female
  Weight: 68.826 kg

DRUGS (6)
  1. OXALIPLATIN [Suspect]
     Indication: OESOPHAGEAL ADENOCARCINOMA METASTATIC
     Route: 042
     Dates: start: 20111020, end: 20111110
  2. COMPAZINE [Concomitant]
  3. AVASTIN [Suspect]
     Indication: OESOPHAGEAL ADENOCARCINOMA METASTATIC
     Route: 042
     Dates: start: 20111020, end: 20111110
  4. XELODA [Suspect]
     Indication: OESOPHAGEAL ADENOCARCINOMA METASTATIC
     Route: 048
     Dates: start: 20111020, end: 20111118
  5. PRILOSEC [Concomitant]
  6. ZOFRAN [Concomitant]

REACTIONS (1)
  - WOUND COMPLICATION [None]
